FAERS Safety Report 9607520 (Version 2)
Quarter: 2013Q4

REPORT INFORMATION
  Report Type: Spontaneous
  Country: DE (occurrence: DE)
  Receive Date: 20131009
  Receipt Date: 20131107
  Transmission Date: 20140711
  Serious: Yes (Other)
  Sender: FDA-Public Use
  Company Number: DE-BAYER-2013-120182

PATIENT
  Age: 40 Year
  Sex: Female

DRUGS (2)
  1. MIRENA [Suspect]
     Dosage: 20 MCG/24HR, CONT
     Route: 015
     Dates: start: 201305
  2. ASS [Concomitant]
     Dosage: 100 MG, UNK
     Route: 048
     Dates: end: 201309

REACTIONS (2)
  - Exfoliative rash [None]
  - Intracranial aneurysm [Recovered/Resolved]
